FAERS Safety Report 9787812 (Version 4)
Quarter: 2014Q2

REPORT INFORMATION
  Report Type: Spontaneous
  Country: US (occurrence: US)
  Receive Date: 20131230
  Receipt Date: 20140516
  Transmission Date: 20141212
  Serious: Yes (Other)
  Sender: FDA-Public Use
  Company Number: US-PFIZER INC-2013372475

PATIENT
  Age: 53 Year
  Sex: Male
  Weight: 88 kg

DRUGS (18)
  1. LYRICA [Suspect]
     Indication: NEURALGIA
     Dosage: 150 MG, 2 TIMES A DAY
     Route: 048
     Dates: start: 20121114
  2. LYRICA [Suspect]
     Dosage: 50 MG, 1-2, ORALLY, 2 BID X 2D
  3. LYRICA [Suspect]
     Dosage: 1 TID X 2 D
  4. LYRICA [Suspect]
     Dosage: 1 BID X 2 D
  5. LYRICA [Suspect]
     Dosage: 1 QD FOR 3D
     Dates: end: 20140207
  6. LYRICA [Suspect]
     Dosage: UNK
     Dates: start: 20121104, end: 201402
  7. ZYRTEC [Concomitant]
     Dosage: 10 MG, ONCE A DAY
  8. ADVAIR DISKUS [Concomitant]
     Dosage: 100 MCG-50 MCG POWDER 1 PUFF (S) 2 TIMES A DAY PRN
  9. PRAVACHOL [Concomitant]
     Dosage: 40 MG, ONCE A DAY AT BEDTIME
     Dates: end: 20140207
  10. OMEPRAZOLE [Concomitant]
     Dosage: 40 MG, ONCE A DAY
  11. ZOLPIDEM [Concomitant]
     Dosage: 10 MG, ONCE A DAY AT BEDTIME
  12. EPIPEN [Concomitant]
     Dosage: 0.3 MG, SINGLE
  13. DICLOFENAC SODIUM [Concomitant]
     Dosage: 75 MG, 2 TIMES A DAY
  14. FERROUS SULFATE [Concomitant]
     Dosage: 1 DF, ONCE A DAY
  15. NORCO [Concomitant]
     Dosage: HYDROCODONE BITARTRATE 10MG/PARACETAMOL 325MG, 1-2 TABS BID PRN, MAXIMUM 65 FOR30 DAYS
  16. ATORVASTATIN [Concomitant]
     Dosage: 10 MG, ONCE A DAY AT BEDTIME
  17. BUPROPION [Concomitant]
     Dosage: 150 MG, EVERY 24 HOURS
  18. FENOFIBRATE [Concomitant]
     Dosage: 145 MG, ONCE A DAY

REACTIONS (10)
  - Drug dependence [Unknown]
  - Rotator cuff syndrome [Unknown]
  - Weight increased [Unknown]
  - Drug withdrawal syndrome [Recovered/Resolved]
  - Nausea [Recovered/Resolved]
  - Insomnia [Recovered/Resolved]
  - Decreased appetite [Recovered/Resolved]
  - Vomiting [Recovered/Resolved]
  - Parosmia [Recovered/Resolved]
  - Formication [Unknown]
